FAERS Safety Report 9940467 (Version 2)
Quarter: 2014Q1

REPORT INFORMATION
  Report Type: Spontaneous
  Country: FR (occurrence: FR)
  Receive Date: 20140303
  Receipt Date: 20140303
  Transmission Date: 20141002
  Serious: Yes (Death, Other)
  Sender: FDA-Public Use
  Company Number: FR-BAYER-2013-151622

PATIENT
  Age: 62 Year
  Sex: Female
  Weight: 54 kg

DRUGS (7)
  1. STIVARGA [Suspect]
     Indication: COLON CANCER METASTATIC
     Dosage: DAILY DOSE 160 MG
     Dates: start: 2013, end: 2013
  2. STIVARGA [Suspect]
     Indication: COLON CANCER METASTATIC
     Dosage: 120 MG, QD
     Dates: start: 2013, end: 201312
  3. OXYCONTIN [Concomitant]
     Indication: PAIN
     Dosage: UNK
     Route: 048
     Dates: start: 2013
  4. SOLUPRED [PREDNISOLONE] [Concomitant]
     Indication: PAIN
     Dosage: UNK
     Route: 048
     Dates: start: 2013
  5. ZOLPIDEM [Concomitant]
     Indication: INSOMNIA
     Dosage: UNK
     Route: 048
  6. ATARAX [Concomitant]
     Indication: INSOMNIA
     Dosage: UNK
     Route: 048
  7. EUPANTOL [Concomitant]
     Indication: PROPHYLAXIS
     Dosage: UNK
     Route: 048

REACTIONS (3)
  - Asthenia [None]
  - Hypothyroidism [None]
  - Colon cancer [Fatal]
